FAERS Safety Report 4280567-7 (Version None)
Quarter: 2004Q1

REPORT INFORMATION
  Report Type: 
  Country: None (occurrence: None)
  Receive Date: 20040127
  Receipt Date: 20040121
  Transmission Date: 20041129
  Serious: Yes (Hospitalization, Other)
  Sender: FDA-Public Use
  Company Number: 2004193310CH

PATIENT
  Age: 60 Year
  Sex: Female
  Weight: 55 kg

DRUGS (6)
  1. CABERGOLINE [Suspect]
     Indication: PARKINSON'S DISEASE
     Dosage: ORAL
     Route: 048
     Dates: start: 20010814, end: 20020623
  2. SINEMET [Concomitant]
  3. APOMORPHINE (APOMORPHINE) [Concomitant]
  4. SAROTEN RETARD (AMITRIPTYLINE HYDROCHLORIDE) [Concomitant]
  5. AMANTADINE HCL [Concomitant]
  6. ANTRA [Concomitant]

REACTIONS (1)
  - ILEUS PARALYTIC [None]
